FAERS Safety Report 20706674 (Version 1)
Quarter: 2022Q2

REPORT INFORMATION
  Report Type: Spontaneous
  Country: US (occurrence: US)
  Receive Date: 20220413
  Receipt Date: 20220413
  Transmission Date: 20220721
  Serious: No
  Sender: FDA-Public Use
  Company Number: US-SANOFI-01055709

PATIENT
  Age: 35 Year
  Sex: Female

DRUGS (2)
  1. SOLIQUA 100/33 [Suspect]
     Active Substance: INSULIN GLARGINE\LIXISENATIDE
     Indication: Type 2 diabetes mellitus
     Dosage: DRUG STRUCTURE DOSAGE : 35 TO 40 UNITS DRUG INTERVAL DOSAGE : ONCE A DAY DRUG TREATMENT DURATION:
  2. SOLIQUA 100/33 [Suspect]
     Active Substance: INSULIN GLARGINE\LIXISENATIDE
     Dosage: UNK UNK, 1X

REACTIONS (2)
  - COVID-19 [Unknown]
  - SARS-CoV-2 test positive [Unknown]
